FAERS Safety Report 8249226-X (Version None)
Quarter: 2012Q1

REPORT INFORMATION
  Report Type: 
  Country: None (occurrence: None)
  Receive Date: 20120327
  Receipt Date: 20120320
  Transmission Date: 20120608
  Serious: Yes (Death)
  Sender: FDA-Public Use
  Company Number: DSA_55751_2012

PATIENT
  Sex: Male

DRUGS (1)
  1. XENAZINE [Suspect]
     Indication: HUNTINGTON'S DISEASE
     Dosage: )  (25 MG TID ORAL)
     Route: 048

REACTIONS (2)
  - HUNTINGTON'S DISEASE [None]
  - DISEASE COMPLICATION [None]
